FAERS Safety Report 8896158 (Version 1)
Quarter: 2012Q4

REPORT INFORMATION
  Report Type: Report from Study
  Country: US (occurrence: US)
  Receive Date: 20121108
  Receipt Date: 20121108
  Transmission Date: 20130627
  Serious: Yes (Other)
  Sender: FDA-Public Use
  Company Number: US-ROCHE-1152751

PATIENT
  Age: 57 Year
  Sex: Female
  Weight: 99 kg

DRUGS (3)
  1. PEG-INTERFERON ALFA 2A [Suspect]
     Indication: PRODUCT USED FOR UNKNOWN INDICATION
     Dosage: Date of most recent dose: 26/Oct/2012
     Route: 065
     Dates: start: 20121005
  2. RIBAVIRIN [Suspect]
     Indication: PRODUCT USED FOR UNKNOWN INDICATION
     Dosage: Date of most recent dose: 02/Nov/2012
     Route: 065
     Dates: start: 20121005
  3. TELAPREVIR [Suspect]
     Indication: PRODUCT USED FOR UNKNOWN INDICATION
     Dosage: Date of most recent dose: 02/Nov/2012
     Route: 065
     Dates: start: 20121005

REACTIONS (1)
  - Presyncope [Recovered/Resolved with Sequelae]
